FAERS Safety Report 7909785-0 (Version None)
Quarter: 2011Q4

REPORT INFORMATION
  Report Type: 
  Country: None (occurrence: None)
  Receive Date: 20111111
  Receipt Date: 20110801
  Transmission Date: 20120403
  Serious: No
  Sender: FDA-Public Use
  Company Number: US-BAYER-2011-070617

PATIENT
  Sex: Female

DRUGS (1)
  1. ALEVE (CAPLET) [Suspect]
     Dosage: 10 DF, UNK
     Dates: start: 20110731, end: 20110801

REACTIONS (2)
  - NO ADVERSE EVENT [None]
  - DRUG INEFFECTIVE [None]
